FAERS Safety Report 18945693 (Version 2)
Quarter: 2021Q4

REPORT INFORMATION
  Report Type: Spontaneous
  Country: SE (occurrence: SE)
  Receive Date: 20210226
  Receipt Date: 20211010
  Transmission Date: 20220303
  Serious: Yes (Death, Congenital Anomaly)
  Sender: FDA-Public Use
  Company Number: None

PATIENT
  Age: 4 Week
  Sex: Female

DRUGS (3)
  1. RIVAROXABAN [Suspect]
     Active Substance: RIVAROXABAN
     Indication: Post thrombotic syndrome
     Dosage: 10 MG, UNK
     Route: 048
  2. RIVAROXABAN [Suspect]
     Active Substance: RIVAROXABAN
     Dosage: 10 MG, UNK
     Route: 048
     Dates: start: 20170705, end: 201910
  3. RIVAROXABAN [Suspect]
     Active Substance: RIVAROXABAN
     Route: 048

REACTIONS (3)
  - Sudden death [Fatal]
  - Patent ductus arteriosus [Fatal]
  - Maternal exposure before pregnancy [Fatal]

NARRATIVE: CASE EVENT DATE: 20200101
